FAERS Safety Report 12884221 (Version 2)
Quarter: 2016Q4

REPORT INFORMATION
  Report Type: Spontaneous
  Country: US (occurrence: US)
  Receive Date: 20161026
  Receipt Date: 20161031
  Transmission Date: 20170207
  Serious: Yes (Other)
  Sender: FDA-Public Use
  Company Number: US-PFIZER INC-2016496921

PATIENT
  Sex: Female

DRUGS (1)
  1. ZOLOFT [Suspect]
     Active Substance: SERTRALINE HYDROCHLORIDE
     Dosage: 100 MG, 1X/DAY

REACTIONS (9)
  - Cardiac disorder [Unknown]
  - Visual impairment [Unknown]
  - Dyspnoea [Unknown]
  - Hernia [Unknown]
  - Osteoporosis [Unknown]
  - Electrocardiogram abnormal [Unknown]
  - Eye swelling [Unknown]
  - Chronic obstructive pulmonary disease [Unknown]
  - Dizziness [Unknown]
